FAERS Safety Report 9980513 (Version 3)
Quarter: 2014Q2

REPORT INFORMATION
  Report Type: Spontaneous
  Country: US (occurrence: US)
  Receive Date: 20140307
  Receipt Date: 20140609
  Transmission Date: 20141212
  Serious: Yes (Hospitalization)
  Sender: FDA-Public Use
  Company Number: US-BIOGENIDEC-2014BI020006

PATIENT
  Age: 41 Year
  Sex: Female

DRUGS (21)
  1. TYSABRI [Suspect]
     Indication: MULTIPLE SCLEROSIS
     Route: 042
     Dates: start: 20110401, end: 20121120
  2. AMBIEN CR [Concomitant]
  3. DILAUDID [Concomitant]
  4. FIORICET [Concomitant]
  5. FOLIC ACID [Concomitant]
  6. HYDROCORTISONE [Concomitant]
  7. IBUPROFEN [Concomitant]
  8. LYRICA [Concomitant]
  9. OXCARBAZEPINE [Concomitant]
  10. PRENATAL  VITAMIN [Concomitant]
  11. PREVACID [Concomitant]
  12. PROAIR HFA [Concomitant]
  13. SYNTHROID [Concomitant]
  14. TOPAMAX [Concomitant]
  15. VALIUM [Concomitant]
  16. VITAMIN B12 [Concomitant]
  17. VITAMIN D [Concomitant]
  18. XOPENEX [Concomitant]
  19. ZANAFLEX [Concomitant]
  20. ZANTAC [Concomitant]
  21. MIRENA [Concomitant]

REACTIONS (1)
  - Pneumonia [Unknown]
